FAERS Safety Report 7632184-6 (Version None)
Quarter: 2011Q3

REPORT INFORMATION
  Report Type: 
  Country: None (occurrence: None)
  Receive Date: 20110725
  Receipt Date: 20110531
  Transmission Date: 20111222
  Serious: No
  Sender: FDA-Public Use
  Company Number: US-BRISTOL-MYERS SQUIBB COMPANY-15793342

PATIENT
  Sex: Female

DRUGS (5)
  1. TYLENOL-500 [Concomitant]
  2. MICARDIS [Concomitant]
  3. POTASSIUM [Concomitant]
  4. LASIX [Concomitant]
  5. COUMADIN [Suspect]
     Indication: ATRIAL FIBRILLATION
     Dosage: RX NUMBER:401624441

REACTIONS (1)
  - SYNCOPE [None]
